FAERS Safety Report 5092351-5 (Version None)
Quarter: 2006Q3

REPORT INFORMATION
  Report Type: 
  Country: None (occurrence: None)
  Receive Date: 20060727
  Receipt Date: 20060628
  Transmission Date: 20061208
  Serious: Yes (Other)
  Sender: FDA-Public Use
  Company Number: 2006082602

PATIENT
  Age: 56 Year
  Sex: Female

DRUGS (8)
  1. LYRICA [Suspect]
     Indication: PAIN IN EXTREMITY
     Dosage: (2 IN 1 D)
     Dates: start: 20060601
  2. GABAPENTIN [Suspect]
     Indication: PAIN IN EXTREMITY
     Dates: start: 20060101, end: 20060101
  3. LUTEIN (XANTHOPHYLL) [Concomitant]
  4. TRAZODONE HCL [Concomitant]
  5. ZELNORM [Concomitant]
  6. ADVAIR (FLUTCASONE PROPIONATE, SALMETEROL XINAFOATE) [Concomitant]
  7. MIRALAX [Concomitant]
  8. HYDROCODONE (HYDROCODONE) [Concomitant]

REACTIONS (2)
  - THERAPEUTIC RESPONSE DECREASED [None]
  - VISION BLURRED [None]
